FAERS Safety Report 5341122-0 (Version None)
Quarter: 2007Q2

REPORT INFORMATION
  Report Type: 
  Country: None (occurrence: None)
  Receive Date: 20070405
  Receipt Date: 20070108
  Transmission Date: 20071010
  Serious: No
  Sender: FDA-Public Use
  Company Number: US200701001337

PATIENT
  Age: 85 Year
  Sex: Male

DRUGS (1)
  1. CYMBALTA [Suspect]
     Indication: PAIN IN EXTREMITY
     Dosage: 30 MG
     Dates: start: 20061218

REACTIONS (3)
  - DIZZINESS [None]
  - DYSPNOEA [None]
  - PANIC ATTACK [None]
